FAERS Safety Report 9000920 (Version 2)
Quarter: 2013Q1

REPORT INFORMATION
  Report Type: Spontaneous
  Country: CA (occurrence: CA)
  Receive Date: 20130107
  Receipt Date: 20130125
  Transmission Date: 20140127
  Serious: Yes (Death, Hospitalization)
  Sender: FDA-Public Use
  Company Number: PHHY2013CA001323

PATIENT
  Sex: Female

DRUGS (7)
  1. ACLASTA [Suspect]
     Indication: OSTEOPOROSIS
     Dosage: 5 MG/100 ML
     Route: 042
     Dates: start: 20110303
  2. METOPROLOL [Concomitant]
     Dosage: 40 MG, QD
  3. CITALOPRAM [Concomitant]
     Dosage: 20 MG, QD
  4. CLONAZEPAM [Concomitant]
     Dosage: 1 MG, QHS
  5. VENLAFAXINE [Concomitant]
     Dosage: 75 MG, QD
  6. MIDODRINE [Concomitant]
     Dosage: 5 MG, TID
  7. PARIET [Concomitant]
     Dosage: 20 MG, QD

REACTIONS (2)
  - Pulmonary fibrosis [Fatal]
  - Pneumonia [Unknown]
